FAERS Safety Report 24072444 (Version 2)
Quarter: 2024Q3

REPORT INFORMATION
  Report Type: Spontaneous
  Country: US (occurrence: US)
  Receive Date: 20240710
  Receipt Date: 20240912
  Transmission Date: 20241016
  Serious: No
  Sender: IPSEN
  Company Number: US-IPSEN Group, Research and Development-2024-02843

PATIENT
  Age: 70 Year
  Sex: Female
  Weight: 95 kg

DRUGS (23)
  1. TAZVERIK [Suspect]
     Active Substance: TAZEMETOSTAT HYDROBROMIDE
     Indication: Non-Hodgkin^s lymphoma
     Dosage: 800 MG TWICE DAILY
     Route: 048
     Dates: start: 20240203
  2. TAZVERIK [Suspect]
     Active Substance: TAZEMETOSTAT HYDROBROMIDE
     Indication: Off label use
  3. REVLIMID [Concomitant]
     Active Substance: LENALIDOMIDE
  4. ELIQUIS [Concomitant]
     Active Substance: APIXABAN
  5. VALSARTAN [Concomitant]
     Active Substance: VALSARTAN
  6. TYLENOL [Concomitant]
     Active Substance: ACETAMINOPHEN
  7. QUETIAPINE [Concomitant]
     Active Substance: QUETIAPINE
  8. ATORVASTATIN [Concomitant]
     Active Substance: ATORVASTATIN
  9. METOPROLOL [Concomitant]
     Active Substance: METOPROLOL
  10. JARDIANCE [Concomitant]
     Active Substance: EMPAGLIFLOZIN
  11. LEVOTHYROXINE [Concomitant]
     Active Substance: LEVOTHYROXINE\LEVOTHYROXINE SODIUM
  12. POTASSIUM [Concomitant]
     Active Substance: POTASSIUM
  13. FUROSEMIDE [Concomitant]
     Active Substance: FUROSEMIDE
  14. METOLAZONE [Concomitant]
     Active Substance: METOLAZONE
  15. ALLOPURINOL [Concomitant]
     Active Substance: ALLOPURINOL
  16. METFORMIN [Concomitant]
     Active Substance: METFORMIN HYDROCHLORIDE
  17. BENZTROPINE [Concomitant]
     Active Substance: BENZTROPINE
  18. CELEBREX [Concomitant]
     Active Substance: CELECOXIB
  19. PROCHLORPERAZINE [Concomitant]
     Active Substance: PROCHLORPERAZINE
  20. ACETAMINOPHEN [Concomitant]
     Active Substance: ACETAMINOPHEN
  21. INVEGA SUSTENNA [Concomitant]
     Active Substance: PALIPERIDONE PALMITATE
  22. ONE A DAY WOMENS [Concomitant]
  23. RECLAST [Concomitant]
     Active Substance: ZOLEDRONIC ACID

REACTIONS (10)
  - Disease progression [Unknown]
  - Discomfort [Unknown]
  - Fatigue [Not Recovered/Not Resolved]
  - Trismus [Not Recovered/Not Resolved]
  - Myalgia [Not Recovered/Not Resolved]
  - Nasopharyngitis [Unknown]
  - Cough [Not Recovered/Not Resolved]
  - Headache [Unknown]
  - Influenza like illness [Recovered/Resolved]
  - Off label use [Unknown]

NARRATIVE: CASE EVENT DATE: 20240203
